FAERS Safety Report 6170593-5 (Version None)
Quarter: 2009Q2

REPORT INFORMATION
  Report Type: 
  Country: None (occurrence: None)
  Receive Date: 20090428
  Receipt Date: 20090420
  Transmission Date: 20091009
  Serious: Yes (Disabling, Other)
  Sender: FDA-Public Use
  Company Number: US-ELI_LILLY_AND_COMPANY-US200904004805

PATIENT
  Sex: Female

DRUGS (4)
  1. FORTEO [Suspect]
     Indication: OSTEOPENIA
     Dosage: UNK, UNK
     Dates: start: 20090101
  2. CALCIUM [Concomitant]
  3. VITAMIN D [Concomitant]
     Dosage: UNK, WEEKLY (1/W)
  4. MAGNESIUM OXIDE [Concomitant]
     Indication: MUSCLE SPASMS
     Dosage: 400 MG, EACH EVENING

REACTIONS (7)
  - ABASIA [None]
  - ARTHRALGIA [None]
  - FOOT FRACTURE [None]
  - GAIT DISTURBANCE [None]
  - INJECTION SITE URTICARIA [None]
  - PAIN IN EXTREMITY [None]
  - STRESS FRACTURE [None]
